FAERS Safety Report 7776604-5 (Version None)
Quarter: 2011Q3

REPORT INFORMATION
  Report Type: 
  Country: None (occurrence: None)
  Receive Date: 20110926
  Receipt Date: 20110916
  Transmission Date: 20111222
  Serious: Yes (Other)
  Sender: FDA-Public Use
  Company Number: US-JNJFOC-20110907823

PATIENT
  Sex: Female
  Weight: 54.43 kg

DRUGS (10)
  1. PERCOCET [Concomitant]
     Indication: PAIN
     Dosage: 5/325 MG
     Route: 048
     Dates: start: 20110101
  2. SIMVASTATIN [Concomitant]
     Indication: BLOOD CHOLESTEROL INCREASED
     Route: 048
  3. TOPAMAX [Suspect]
     Indication: MIGRAINE
     Route: 048
     Dates: start: 20000101
  4. FLUTICASONE PROPIONATE [Concomitant]
     Indication: MULTIPLE ALLERGIES
     Route: 055
  5. NORVASC [Concomitant]
     Indication: CARDIAC DISORDER
     Route: 048
  6. FENTANYL-100 [Suspect]
     Indication: RADICULAR PAIN
     Dosage: 12.5 UG/HR+25 UG/HR
     Route: 062
     Dates: start: 20090101
  7. OMEPRAZOLE [Concomitant]
     Indication: GASTROOESOPHAGEAL REFLUX DISEASE
     Route: 048
  8. OXYCODONE [Concomitant]
     Indication: PAIN
     Dosage: 1-2 TABLET AS NEEDED
     Route: 048
     Dates: end: 20110101
  9. ADVAIR DISKUS 100/50 [Concomitant]
     Indication: ASTHMA
     Route: 048
     Dates: end: 20100101
  10. SINGULAIR [Concomitant]
     Indication: ASTHMA
     Route: 048

REACTIONS (1)
  - BRONCHIECTASIS [None]
